FAERS Safety Report 15662227 (Version 1)
Quarter: 2018Q4

REPORT INFORMATION
  Report Type: Report from Study
  Country: US (occurrence: US)
  Receive Date: 20181127
  Receipt Date: 20181127
  Transmission Date: 20190205
  Serious: Yes (Hospitalization)
  Sender: FDA-Public Use
  Company Number: US-SAKK-2018SA319115AA

PATIENT
  Age: 64 Year
  Sex: Male
  Weight: 121.2 kg

DRUGS (1)
  1. INSULIN GLARGINE [Suspect]
     Active Substance: INSULIN GLARGINE
     Dosage: 150 U, QD
     Dates: start: 20180515, end: 20180727

REACTIONS (3)
  - Asthenia [Not Recovered/Not Resolved]
  - Diabetic foot [Not Recovered/Not Resolved]
  - Chills [Not Recovered/Not Resolved]

NARRATIVE: CASE EVENT DATE: 20181114
